FAERS Safety Report 7309980-8 (Version None)
Quarter: 2011Q1

REPORT INFORMATION
  Report Type: 
  Country: None (occurrence: None)
  Receive Date: 20110224
  Receipt Date: 20110210
  Transmission Date: 20110831
  Serious: Yes (Hospitalization)
  Sender: FDA-Public Use
  Company Number: JP-RANBAXY-2010RR-33329

PATIENT
  Age: 17 Year
  Sex: Male

DRUGS (6)
  1. ZONISAMIDE [Suspect]
     Dosage: UNK
     Dates: start: 20070501
  2. CEFDITOREN [Suspect]
  3. CARBOCISTEINE [Suspect]
  4. AMOXICILLIN [Suspect]
     Dosage: UNK
  5. CARBAMAZEPINE [Suspect]
     Dosage: UNK
     Dates: start: 20070501
  6. BEPOTASTINE BESTILATE [Suspect]

REACTIONS (8)
  - ASPARTATE AMINOTRANSFERASE INCREASED [None]
  - DRUG RASH WITH EOSINOPHILIA AND SYSTEMIC SYMPTOMS [None]
  - EOSINOPHIL PERCENTAGE INCREASED [None]
  - TOXIC EPIDERMAL NECROLYSIS [None]
  - BLOOD LACTATE DEHYDROGENASE INCREASED [None]
  - LYMPHOCYTE PERCENTAGE INCREASED [None]
  - ALANINE AMINOTRANSFERASE INCREASED [None]
  - GAMMA-GLUTAMYLTRANSFERASE INCREASED [None]
